FAERS Safety Report 15233121 (Version 2)
Quarter: 2019Q1

REPORT INFORMATION
  Report Type: Spontaneous
  Country: PL (occurrence: PL)
  Receive Date: 20180802
  Receipt Date: 20190214
  Transmission Date: 20190417
  Serious: Yes (Death, Other)
  Sender: FDA-Public Use
  Company Number: PL-MYLANLABS-2018M1059759

PATIENT
  Age: 59 Year
  Sex: Female

DRUGS (4)
  1. VORICONAZOLE. [Suspect]
     Active Substance: VORICONAZOLE
     Indication: BACTERIAL INFECTION
     Dosage: UNK
     Route: 042
  2. AMIODARONE [Suspect]
     Active Substance: AMIODARONE
     Indication: PRODUCT USED FOR UNKNOWN INDICATION
     Dosage: UNK
     Dates: start: 201712
  3. MEROPENEM. [Concomitant]
     Active Substance: MEROPENEM
     Dosage: UNK
  4. LINEZOLID. [Suspect]
     Active Substance: LINEZOLID
     Indication: BACTERIAL INFECTION
     Dosage: UNK

REACTIONS (12)
  - Confusional state [Unknown]
  - Off label use [Not Recovered/Not Resolved]
  - Atrial fibrillation [Unknown]
  - Stevens-Johnson syndrome [Fatal]
  - Procalcitonin increased [Unknown]
  - Disorientation [Unknown]
  - C-reactive protein increased [Unknown]
  - Aggression [Unknown]
  - Blood pressure decreased [Unknown]
  - Abdominal pain [Recovering/Resolving]
  - Peritonitis [Unknown]
  - Drug ineffective [Unknown]

NARRATIVE: CASE EVENT DATE: 2017
